FAERS Safety Report 22194189 (Version 2)
Quarter: 2023Q2

REPORT INFORMATION
  Report Type: Other
  Country: US (occurrence: None)
  Receive Date: 20230411
  Receipt Date: 20230419
  Transmission Date: 20230722
  Serious: Yes (Hospitalization, Other)
  Sender: FDA-Public Use
  Company Number: US-ROCHE-3325613

PATIENT
  Sex: Female
  Weight: 98.972 kg

DRUGS (10)
  1. VABYSMO [Suspect]
     Active Substance: FARICIMAB-SVOA
     Indication: Neovascular age-related macular degeneration
     Dosage: UNKNOWN
     Route: 050
     Dates: start: 20230303
  2. RITUXAN [Suspect]
     Active Substance: RITUXIMAB
     Indication: Hairy cell leukaemia
     Dosage: NO
     Route: 065
     Dates: start: 2017, end: 20230113
  3. AVASTIN [Suspect]
     Active Substance: BEVACIZUMAB
     Indication: Neovascular age-related macular degeneration
     Route: 065
     Dates: start: 2021
  4. ZOFRAN [Concomitant]
     Active Substance: ONDANSETRON HYDROCHLORIDE
  5. EYLEA [Concomitant]
     Active Substance: AFLIBERCEPT
  6. SIMBRINZA [Concomitant]
     Active Substance: BRIMONIDINE TARTRATE\BRINZOLAMIDE
     Indication: Glaucoma
  7. IRON [Concomitant]
     Active Substance: IRON
  8. ZINC [Concomitant]
     Active Substance: ZINC
  9. ALBUTEROL SULFATE [Concomitant]
     Active Substance: ALBUTEROL SULFATE
     Indication: Bronchitis chronic
  10. ALBUTEROL SULFATE [Concomitant]
     Active Substance: ALBUTEROL SULFATE
     Indication: Asthma

REACTIONS (20)
  - Cellulitis [Recovered/Resolved]
  - Platelet count decreased [Unknown]
  - Diabetes mellitus [Not Recovered/Not Resolved]
  - Nausea [Recovered/Resolved]
  - Eye pain [Recovered/Resolved]
  - Myalgia [Unknown]
  - Off label use [Unknown]
  - Rash pruritic [Unknown]
  - Chills [Recovered/Resolved]
  - Myalgia [Recovered/Resolved with Sequelae]
  - Muscle strain [Recovering/Resolving]
  - Head discomfort [Recovered/Resolved]
  - Chills [Recovered/Resolved]
  - Blood pressure increased [Unknown]
  - Weight increased [Unknown]
  - Glaucoma [Not Recovered/Not Resolved]
  - Diabetic retinopathy [Not Recovered/Not Resolved]
  - Asthma [Not Recovered/Not Resolved]
  - Lacrimation increased [Recovered/Resolved]
  - Off label use [Unknown]

NARRATIVE: CASE EVENT DATE: 20170101
